FAERS Safety Report 14190079 (Version 6)
Quarter: 2018Q2

REPORT INFORMATION
  Report Type: Report from Study
  Country: DE (occurrence: DE)
  Receive Date: 20171115
  Receipt Date: 20180516
  Transmission Date: 20180711
  Serious: Yes (Hospitalization)
  Sender: FDA-Public Use
  Company Number: PHHY2017DE168049

PATIENT
  Age: 57 Year
  Sex: Male

DRUGS (2)
  1. GILENYA [Suspect]
     Active Substance: FINGOLIMOD HYDROCHLORIDE
     Indication: MULTIPLE SCLEROSIS
     Dosage: 0.5 MG, QD
     Route: 048
     Dates: start: 20140313, end: 20171108
  2. SPASMEX [Concomitant]
     Indication: DETRUSOR SPHINCTER DYSSYNERGIA
     Dosage: 15 MG, UNK
     Route: 065
     Dates: start: 201310

REACTIONS (3)
  - Computerised tomogram thorax abnormal [Not Recovered/Not Resolved]
  - Lung disorder [Not Recovered/Not Resolved]
  - Trigeminal neuralgia [Unknown]

NARRATIVE: CASE EVENT DATE: 20171027
